FAERS Safety Report 11313445 (Version 2)
Quarter: 2016Q4

REPORT INFORMATION
  Report Type: Spontaneous
  Country: US (occurrence: US)
  Receive Date: 20150727
  Receipt Date: 20161114
  Transmission Date: 20170206
  Serious: No
  Sender: FDA-Public Use
  Company Number: US-PFIZER INC-2015236573

PATIENT
  Age: 75 Year
  Sex: Female

DRUGS (7)
  1. VALIUM [Suspect]
     Active Substance: DIAZEPAM
     Dosage: UNK
  2. CLINORIL [Suspect]
     Active Substance: SULINDAC
     Dosage: UNK
  3. IBUPROFEN. [Suspect]
     Active Substance: IBUPROFEN
     Dosage: UNK
  4. ALBAMYCIN [Suspect]
     Active Substance: NOVOBIOCIN SODIUM
     Dosage: UNK
  5. TETRACYCLINE HCL [Suspect]
     Active Substance: TETRACYCLINE HYDROCHLORIDE
     Dosage: UNK
  6. VIOXX [Suspect]
     Active Substance: ROFECOXIB
     Dosage: UNK
  7. TOLECTIN [Suspect]
     Active Substance: TOLMETIN SODIUM
     Dosage: UNK

REACTIONS (1)
  - Drug hypersensitivity [Unknown]
